FAERS Safety Report 13872168 (Version 1)
Quarter: 2017Q3

REPORT INFORMATION
  Report Type: Spontaneous
  Country: US (occurrence: US)
  Receive Date: 20170816
  Receipt Date: 20170816
  Transmission Date: 20171127
  Serious: No
  Sender: FDA-Public Use
  Company Number: US-ENDO PHARMACEUTICALS INC-2016-004956

PATIENT
  Age: 59 Year
  Sex: Female
  Weight: 49.94 kg

DRUGS (3)
  1. SEROQUEL [Concomitant]
     Active Substance: QUETIAPINE FUMARATE
     Indication: HEADACHE
  2. SUMAVEL DOSEPRO [Suspect]
     Active Substance: SUMATRIPTAN SUCCINATE
     Indication: MIGRAINE
     Dosage: INJECT AT ONSET OF HEADACHES THAT OCCUR EARLY IN MORNING
     Route: 065
     Dates: start: 2011
  3. ACCOLATE [Concomitant]
     Active Substance: ZAFIRLUKAST
     Indication: MIGRAINE

REACTIONS (6)
  - Blood pressure increased [Not Recovered/Not Resolved]
  - Underdose [Recovered/Resolved]
  - Injection site mass [Not Recovered/Not Resolved]
  - Device malfunction [Recovered/Resolved]
  - Drug ineffective [Unknown]
  - Injection site bruising [Not Recovered/Not Resolved]

NARRATIVE: CASE EVENT DATE: 20160723
